FAERS Safety Report 7378040-2 (Version None)
Quarter: 2011Q1

REPORT INFORMATION
  Report Type: 
  Country: None (occurrence: None)
  Receive Date: 20110328
  Receipt Date: 20110323
  Transmission Date: 20110831
  Serious: Yes (Death, Hospitalization, Other)
  Sender: FDA-Public Use
  Company Number: SK-PFIZER INC-2011064228

PATIENT
  Age: 45 Year
  Sex: Female

DRUGS (1)
  1. SUNITINIB MALATE [Suspect]
     Indication: RENAL CANCER METASTATIC
     Dosage: 37.5 MG, 1X/DAY
     Route: 048
     Dates: start: 20100122, end: 20100601

REACTIONS (8)
  - PNEUMOTHORAX [None]
  - PURPURA [None]
  - GENERAL PHYSICAL HEALTH DETERIORATION [None]
  - RENAL CANCER METASTATIC [None]
  - CARDIAC FAILURE [None]
  - DYSPNOEA [None]
  - HYPERTENSION [None]
  - DISEASE PROGRESSION [None]
